FAERS Safety Report 7559413-1 (Version None)
Quarter: 2011Q2

REPORT INFORMATION
  Report Type: 
  Country: None (occurrence: None)
  Receive Date: 20110621
  Receipt Date: 20110616
  Transmission Date: 20111010
  Serious: Yes (Hospitalization, Other)
  Sender: FDA-Public Use
  Company Number: US-BRISTOL-MYERS SQUIBB COMPANY-15736630

PATIENT
  Age: 58 Year
  Sex: Female
  Weight: 143 kg

DRUGS (1)
  1. IPILIMUMAB [Suspect]
     Indication: MALIGNANT MELANOMA
     Dosage: 10 MG/KG IV OVER 90 MIN ON DAY 1 Q12 WEEKS LAST ADM:28APR11 CYCLE:1 COURSES:1
     Route: 042
     Dates: start: 20110428

REACTIONS (14)
  - AUTOIMMUNE DISORDER [None]
  - COLITIS [None]
  - DIARRHOEA [None]
  - RENAL FAILURE ACUTE [None]
  - PLEURAL EFFUSION [None]
  - ALANINE AMINOTRANSFERASE INCREASED [None]
  - BLOOD ALKALINE PHOSPHATASE INCREASED [None]
  - DEHYDRATION [None]
  - RASH MACULO-PAPULAR [None]
  - HYPOKALAEMIA [None]
  - ASPARTATE AMINOTRANSFERASE INCREASED [None]
  - GASTRITIS [None]
  - ABDOMINAL PAIN [None]
  - DYSPNOEA [None]
